FAERS Safety Report 13278850 (Version 1)
Quarter: 2017Q1

REPORT INFORMATION
  Report Type: Spontaneous
  Country: AU (occurrence: AU)
  Receive Date: 20170228
  Receipt Date: 20170228
  Transmission Date: 20170428
  Serious: Yes (Hospitalization, Other)
  Sender: FDA-Public Use
  Company Number: AU-ABBVIE-17P-008-1870321-00

PATIENT
  Age: 65 Year

DRUGS (1)
  1. DUODOPA [Suspect]
     Active Substance: CARBIDOPA\LEVODOPA
     Indication: PARKINSON^S DISEASE
     Route: 050

REACTIONS (8)
  - Bacterial infection [Unknown]
  - Gastrointestinal infection [Unknown]
  - General physical health deterioration [Unknown]
  - Abdominal pain [Unknown]
  - Stoma site erythema [Unknown]
  - Cholecystectomy [Unknown]
  - Abdominal pain [Unknown]
  - Nausea [Unknown]

NARRATIVE: CASE EVENT DATE: 20160510
